FAERS Safety Report 7979239-4 (Version None)
Quarter: 2011Q4

REPORT INFORMATION
  Report Type: 
  Country: None (occurrence: None)
  Receive Date: 20111214
  Receipt Date: 20111214
  Transmission Date: 20120403
  Serious: Yes (Hospitalization, Other)
  Sender: FDA-Public Use
  Company Number: None

PATIENT
  Sex: Female
  Weight: 76.657 kg

DRUGS (1)
  1. BACTRIM DS [Suspect]
     Indication: URINARY TRACT INFECTION
     Dosage: BACTRIM DS
     Route: 048
     Dates: start: 20111122, end: 20111123

REACTIONS (2)
  - ENCEPHALOPATHY [None]
  - MENINGITIS ASEPTIC [None]
